FAERS Safety Report 6656932-7 (Version None)
Quarter: 2010Q1

REPORT INFORMATION
  Report Type: 
  Country: None (occurrence: None)
  Receive Date: 20100329
  Receipt Date: 20100329
  Transmission Date: 20100710
  Serious: Yes (Hospitalization)
  Sender: FDA-Public Use
  Company Number: None

PATIENT
  Age: 64 Year
  Sex: Female
  Weight: 68.0396 kg

DRUGS (2)
  1. HYROQUINONE CREAM WITH SUNSCREENS 4% KV PHARMACEUTICAL FOR ETHEX CORP. [Suspect]
     Indication: EPHELIDES
     Dosage: APPLY CREAM TWICE PER DAY TOP
     Route: 061
     Dates: start: 20080901, end: 20081103
  2. HYROQUINONE CREAM WITH SUNSCREENS 4% KV PHARMACEUTICAL FOR ETHEX CORP. [Suspect]
     Indication: PIGMENTATION DISORDER
     Dosage: APPLY CREAM TWICE PER DAY TOP
     Route: 061
     Dates: start: 20080901, end: 20081103

REACTIONS (3)
  - EOSINOPHILIC PNEUMONIA [None]
  - NO THERAPEUTIC RESPONSE [None]
  - TRACHEITIS [None]
